FAERS Safety Report 21232983 (Version 1)
Quarter: 2022Q3

REPORT INFORMATION
  Report Type: Spontaneous
  Country: US (occurrence: US)
  Receive Date: 20220819
  Receipt Date: 20220819
  Transmission Date: 20221027
  Serious: Yes (Other)
  Sender: FDA-Public Use
  Company Number: US-ENDO PHARMACEUTICALS INC-2022-005022

PATIENT
  Sex: Male
  Weight: 58.957 kg

DRUGS (1)
  1. TESTIM [Suspect]
     Active Substance: TESTOSTERONE
     Indication: Primary hypogonadism
     Dosage: UNK UNKNOWN, UNKNOWN (MIGHT HAVE USED TWO-THIRDS OF IT ONE DAY, AND ONE-THIRD THE NEXT)
     Route: 065
     Dates: start: 2019, end: 2021

REACTIONS (3)
  - Prostate cancer [Recovered/Resolved]
  - Off label use [Recovered/Resolved]
  - Product quality issue [Unknown]

NARRATIVE: CASE EVENT DATE: 20190101
